FAERS Safety Report 6468146-4 (Version None)
Quarter: 2009Q4

REPORT INFORMATION
  Report Type: 
  Country: None (occurrence: None)
  Receive Date: 20091127
  Receipt Date: 20091117
  Transmission Date: 20100525
  Serious: Yes (Death)
  Sender: FDA-Public Use
  Company Number: CERZ-1001038

PATIENT
  Age: 10 Year
  Sex: Male
  Weight: 25 kg

DRUGS (1)
  1. CEREZYME [Suspect]
     Indication: GAUCHER'S DISEASE
     Dosage: 1200 U
     Dates: start: 20090507, end: 20091015

REACTIONS (6)
  - COAGULOPATHY [None]
  - FEBRILE CONVULSION [None]
  - GENERAL PHYSICAL HEALTH DETERIORATION [None]
  - LOWER LIMB FRACTURE [None]
  - PATHOLOGICAL FRACTURE [None]
  - THERAPEUTIC RESPONSE DECREASED [None]
